FAERS Safety Report 16737693 (Version 2)
Quarter: 2019Q4

REPORT INFORMATION
  Report Type: Spontaneous
  Country: US (occurrence: US)
  Receive Date: 20190823
  Receipt Date: 20191001
  Transmission Date: 20200122
  Serious: Yes (Other)
  Sender: FDA-Public Use
  Company Number: US-PFIZER INC-2019345389

PATIENT
  Age: 71 Year
  Sex: Female
  Weight: 68.4 kg

DRUGS (1)
  1. PREPARATION H MEDICATED WIPES [Suspect]
     Active Substance: WITCH HAZEL
     Indication: ENEMA ADMINISTRATION
     Dosage: UNK
     Dates: start: 20190806, end: 20190806

REACTIONS (4)
  - Burning sensation [Recovering/Resolving]
  - Product use issue [Unknown]
  - Irritability [Unknown]
  - Product size issue [Unknown]

NARRATIVE: CASE EVENT DATE: 20190806
